FAERS Safety Report 11135971 (Version 1)
Quarter: 2015Q2

REPORT INFORMATION
  Report Type: Spontaneous
  Country: US (occurrence: US)
  Receive Date: 20150526
  Receipt Date: 20150526
  Transmission Date: 20150821
  Serious: Yes (Other)
  Sender: FDA-Public Use
  Company Number: US-CELGENEUS-USA-2015052678

PATIENT
  Age: 75 Year
  Sex: Female
  Weight: 59.4 kg

DRUGS (1)
  1. THALOMID [Suspect]
     Active Substance: THALIDOMIDE
     Indication: PLASMA CELL MYELOMA
     Dosage: 50 MILLIGRAM
     Route: 048
     Dates: start: 201409

REACTIONS (2)
  - Dementia Alzheimer^s type [Unknown]
  - Fatigue [Unknown]

NARRATIVE: CASE EVENT DATE: 20150106
